FAERS Safety Report 15762808 (Version 1)
Quarter: 2018Q4

REPORT INFORMATION
  Report Type: Spontaneous
  Country: ES (occurrence: ES)
  Receive Date: 20181226
  Receipt Date: 20181226
  Transmission Date: 20190205
  Serious: Yes (Other)
  Sender: FDA-Public Use
  Company Number: ES-PFIZER INC-2018522601

PATIENT
  Age: 46 Year
  Sex: Male

DRUGS (2)
  1. VINCRISTINE SULFATE. [Suspect]
     Active Substance: VINCRISTINE SULFATE
     Indication: CHRONIC MYELOID LEUKAEMIA
     Dosage: VINCRISTINE 0.6 MG/M^2 IV ON DAY 1 PLUS 6-MP 300 MG/M^2 PO DAYS 2 AND 3 EVERY 3 MONTHS
     Route: 042
  2. MERCAPTOPURINE. [Suspect]
     Active Substance: MERCAPTOPURINE
     Indication: CHRONIC MYELOID LEUKAEMIA
     Dosage: VINCRISTINE 0.6 MG/M^2 IV ON DAY 1 PLUS 6-MP 300 MG/M^2 PO DAYS 2 AND 3 EVERY 3 MONTHS
     Route: 048

REACTIONS (1)
  - Thrombocytosis [Recovered/Resolved]
